FAERS Safety Report 10737831 (Version 1)
Quarter: 2015Q1

REPORT INFORMATION
  Report Type: Spontaneous
  Country: GR (occurrence: None)
  Receive Date: 20150122
  Receipt Date: 20150122
  Transmission Date: 20150721
  Serious: Yes (Hospitalization, Other)
  Sender: FDA-Public Use
  Company Number: ADR-2015-00150

PATIENT
  Age: 70 Year
  Sex: Male

DRUGS (1)
  1. BACLOFEN. [Suspect]
     Active Substance: BACLOFEN
     Indication: PAIN IN EXTREMITY

REACTIONS (8)
  - Disorientation [None]
  - Blood sodium decreased [None]
  - Blood creatinine increased [None]
  - Toxicity to various agents [None]
  - Loss of consciousness [None]
  - Blood urea increased [None]
  - Confusional state [None]
  - Blood potassium increased [None]

NARRATIVE: CASE EVENT DATE: 20141119
